FAERS Safety Report 12239661 (Version 6)
Quarter: 2016Q4

REPORT INFORMATION
  Report Type: Spontaneous
  Country: US (occurrence: US)
  Receive Date: 20160405
  Receipt Date: 20161214
  Transmission Date: 20170207
  Serious: Yes (Other)
  Sender: FDA-Public Use
  Company Number: US-009507513-1604USA001034

PATIENT
  Sex: Male

DRUGS (3)
  1. ADDERALL [Concomitant]
     Active Substance: AMPHETAMINE ASPARTATE\AMPHETAMINE SULFATE\DEXTROAMPHETAMINE SACCHARATE\DEXTROAMPHETAMINE SULFATE
     Indication: ATTENTION DEFICIT/HYPERACTIVITY DISORDER
     Dosage: UNK UNK, UNKNOWN
     Route: 065
     Dates: start: 1992, end: 2003
  2. PROPECIA [Suspect]
     Active Substance: FINASTERIDE
     Indication: ANDROGENETIC ALOPECIA
     Dosage: 1 MG, BID
     Route: 048
     Dates: start: 200301, end: 20050101
  3. PROPECIA [Suspect]
     Active Substance: FINASTERIDE
     Dosage: 1 MG, QD
     Route: 048
     Dates: start: 20050101, end: 20120710

REACTIONS (21)
  - Loss of libido [Not Recovered/Not Resolved]
  - Depression [Not Recovered/Not Resolved]
  - Accident [Unknown]
  - Non-alcoholic fatty liver [Unknown]
  - Chronic sinusitis [Unknown]
  - Hormone level abnormal [Not Recovered/Not Resolved]
  - Anxiety [Not Recovered/Not Resolved]
  - Endocrine disorder [Not Recovered/Not Resolved]
  - Breast enlargement [Not Recovered/Not Resolved]
  - Brain injury [Not Recovered/Not Resolved]
  - Erectile dysfunction [Not Recovered/Not Resolved]
  - Penis disorder [Not Recovered/Not Resolved]
  - Painful ejaculation [Not Recovered/Not Resolved]
  - Eustachian tube dysfunction [Unknown]
  - Facial pain [Unknown]
  - Off label use [Unknown]
  - Anorgasmia [Unknown]
  - Sexual dysfunction [Not Recovered/Not Resolved]
  - Sensory loss [Not Recovered/Not Resolved]
  - Inappropriate schedule of drug administration [Unknown]
  - Lip blister [Unknown]

NARRATIVE: CASE EVENT DATE: 200301
